FAERS Safety Report 6626629-8 (Version None)
Quarter: 2010Q1

REPORT INFORMATION
  Report Type: 
  Country: None (occurrence: None)
  Receive Date: 20100309
  Receipt Date: 20100309
  Transmission Date: 20100710
  Serious: Yes (Hospitalization)
  Sender: FDA-Public Use
  Company Number: None

PATIENT
  Age: 75 Year
  Sex: Female
  Weight: 58.3 kg

DRUGS (1)
  1. RITUXIMAB [Suspect]
     Indication: LYMPHOMA
     Dosage: 580 MG X 1 IV
     Route: 042
     Dates: start: 20100303, end: 20100303

REACTIONS (4)
  - CHEST PAIN [None]
  - CHILLS [None]
  - HYPERTENSION [None]
  - PYREXIA [None]
